FAERS Safety Report 8380791-8 (Version None)
Quarter: 2012Q2

REPORT INFORMATION
  Report Type: 
  Country: None (occurrence: None)
  Receive Date: 20120523
  Receipt Date: 20120507
  Transmission Date: 20120825
  Serious: Yes (Hospitalization)
  Sender: FDA-Public Use
  Company Number: PHHY2012CN038847

PATIENT
  Age: 22 Year
  Sex: Male

DRUGS (4)
  1. ADEFOVIR [Concomitant]
  2. TELBIVUDINE [Suspect]
     Indication: HEPATITIS B
     Dosage: 600 MG, QD
     Route: 048
     Dates: start: 20090101
  3. TELBIVUDINE [Suspect]
     Dosage: 600 MG/DAY
     Route: 048
     Dates: end: 20100726
  4. ENTECAVIR [Concomitant]
     Dosage: 0.5 MG/DAY

REACTIONS (28)
  - MYOPATHY [None]
  - BLOOD CREATINE PHOSPHOKINASE INCREASED [None]
  - LACTIC ACIDOSIS [None]
  - MENTAL IMPAIRMENT [None]
  - PLEURAL EFFUSION [None]
  - MYALGIA [None]
  - BLOOD URIC ACID INCREASED [None]
  - RESPIRATORY RATE INCREASED [None]
  - BLOOD LACTATE DEHYDROGENASE INCREASED [None]
  - COUGH [None]
  - MUSCLE SWELLING [None]
  - BLOOD PH DECREASED [None]
  - CHEST DISCOMFORT [None]
  - PYREXIA [None]
  - DYSPNOEA [None]
  - PAIN IN EXTREMITY [None]
  - NEUROPATHY PERIPHERAL [None]
  - VOMITING [None]
  - BLOOD LACTIC ACID INCREASED [None]
  - BLOOD BICARBONATE DECREASED [None]
  - HEART RATE INCREASED [None]
  - MUSCULAR WEAKNESS [None]
  - FATIGUE [None]
  - NAUSEA [None]
  - PALPITATIONS [None]
  - BLOOD PRESSURE DECREASED [None]
  - URINE OUTPUT DECREASED [None]
  - LUNG INFECTION [None]
